FAERS Safety Report 25606088 (Version 1)
Quarter: 2025Q3

REPORT INFORMATION
  Report Type: Spontaneous
  Country: US (occurrence: US)
  Receive Date: 20250725
  Receipt Date: 20250725
  Transmission Date: 20251021
  Serious: Yes (Other)
  Sender: PFIZER
  Company Number: US-PFIZER INC-PV202500088108

PATIENT
  Age: 34 Year
  Sex: Female

DRUGS (3)
  1. ADALIMUMAB [Suspect]
     Active Substance: ADALIMUMAB
     Indication: Psoriasis
  2. ADALIMUMAB [Suspect]
     Active Substance: ADALIMUMAB
  3. APREMILAST [Concomitant]
     Active Substance: APREMILAST
     Indication: Psoriasis
     Route: 048

REACTIONS (3)
  - Self-injurious ideation [Recovered/Resolved]
  - Lupus-like syndrome [Unknown]
  - Depression [Recovered/Resolved]
